FAERS Safety Report 4854419-5 (Version None)
Quarter: 2005Q4

REPORT INFORMATION
  Report Type: 
  Country: None (occurrence: None)
  Receive Date: 20051215
  Receipt Date: 20051209
  Transmission Date: 20060501
  Serious: Yes (Other)
  Sender: FDA-Public Use
  Company Number: 2005UW18617

PATIENT
  Age: 16 Year
  Sex: Male
  Weight: 47.6 kg

DRUGS (2)
  1. SEROQUEL [Suspect]
     Route: 048
  2. LAMICTAL [Concomitant]

REACTIONS (3)
  - CONVULSION [None]
  - MEDICATION ERROR [None]
  - WRONG DRUG ADMINISTERED [None]
